FAERS Safety Report 7554290-7 (Version None)
Quarter: 2011Q2

REPORT INFORMATION
  Report Type: 
  Country: None (occurrence: None)
  Receive Date: 20110617
  Receipt Date: 20110606
  Transmission Date: 20111010
  Serious: Yes (Other)
  Sender: FDA-Public Use
  Company Number: US-ENDO PHARMACEUTICALS INC.-OPIR20110018

PATIENT
  Sex: Male
  Weight: 93.978 kg

DRUGS (4)
  1. OPANA ER [Suspect]
     Route: 048
  2. PRISTIQ [Concomitant]
     Route: 048
  3. OPANA ER [Suspect]
     Route: 048
     Dates: start: 20110301, end: 20110411
  4. COLACE [Concomitant]
     Route: 048

REACTIONS (2)
  - DRUG SCREEN NEGATIVE [None]
  - INTENTIONAL DRUG MISUSE [None]
